FAERS Safety Report 8941289 (Version 1)
Quarter: 2012Q4

REPORT INFORMATION
  Report Type: 
  Country: US (occurrence: US)
  Receive Date: 20121203
  Receipt Date: 20121203
  Transmission Date: 20130627
  Serious: No
  Sender: FDA-Public Use
  Company Number: US-BAYER-2012-124700

PATIENT
  Age: 66 Year
  Sex: Male
  Weight: 115.65 kg

DRUGS (3)
  1. LEVITRA [Suspect]
     Indication: ERECTILE DYSFUNCTION
     Dosage: UNK
     Dates: start: 2003, end: 2004
  2. LIPITOR [Concomitant]
     Indication: HIGH CHOLESTEROL
     Dosage: 40 mg, QD
     Dates: start: 2000
  3. COUMADIN [Concomitant]
     Indication: CLOTTING DISORDER
     Dosage: 5 mg, QD
     Dates: start: 2010

REACTIONS (1)
  - Drug ineffective [Unknown]
